FAERS Safety Report 26143129 (Version 1)
Quarter: 2025Q4

REPORT INFORMATION
  Report Type: Spontaneous
  Country: US (occurrence: US)
  Receive Date: 20251211
  Receipt Date: 20251211
  Transmission Date: 20260117
  Serious: No
  Sender: BIONPHARMA INC.
  Company Number: US-Bion-015331

PATIENT

DRUGS (1)
  1. CETIRIZINE [Suspect]
     Active Substance: CETIRIZINE HYDROCHLORIDE
     Indication: Hypersensitivity
     Route: 048

REACTIONS (5)
  - Somnolence [Unknown]
  - Nausea [Unknown]
  - Drug ineffective [Not Recovered/Not Resolved]
  - Discomfort [Unknown]
  - Product use complaint [Unknown]
